FAERS Safety Report 6739451-9 (Version None)
Quarter: 2010Q2

REPORT INFORMATION
  Report Type: 
  Country: None (occurrence: None)
  Receive Date: 20100525
  Receipt Date: 20100519
  Transmission Date: 20101027
  Serious: Yes (Death, Life-Threatening, Other)
  Sender: FDA-Public Use
  Company Number: JP-BAYER-200912194BYL

PATIENT
  Age: 69 Year
  Sex: Female
  Weight: 49 kg

DRUGS (2)
  1. NEXAVAR [Suspect]
     Indication: HEPATIC NEOPLASM MALIGNANT
     Dosage: TOTAL DAILY DOSE: 800 MG  UNIT DOSE: 200 MG
     Route: 048
     Dates: start: 20090616, end: 20090630
  2. VONFENAC [Suspect]
     Indication: DRUG USE FOR UNKNOWN INDICATION
     Route: 054

REACTIONS (4)
  - DISSEMINATED INTRAVASCULAR COAGULATION [None]
  - DUODENAL ULCER [None]
  - HEPATIC NEOPLASM MALIGNANT [None]
  - SEPSIS [None]
